FAERS Safety Report 23527529 (Version 1)
Quarter: 2024Q1

REPORT INFORMATION
  Report Type: Spontaneous
  Country: PL (occurrence: PL)
  Receive Date: 20240215
  Receipt Date: 20240215
  Transmission Date: 20240409
  Serious: Yes (Other)
  Sender: FDA-Public Use
  Company Number: None

PATIENT
  Age: 68 Year
  Sex: Female
  Weight: 73.5 kg

DRUGS (3)
  1. CISPLATIN [Suspect]
     Active Substance: CISPLATIN
     Indication: Nasopharyngeal cancer
     Route: 042
     Dates: start: 20190514, end: 20190514
  2. DEXAMETHASONE [Concomitant]
     Active Substance: DEXAMETHASONE
     Indication: Nasopharyngeal cancer
     Route: 042
     Dates: start: 20190514, end: 20190514
  3. ONDANSETRON [Concomitant]
     Active Substance: ONDANSETRON
     Indication: Nasopharyngeal cancer
     Route: 042
     Dates: start: 20190514, end: 20190514

REACTIONS (3)
  - Face oedema [Recovering/Resolving]
  - Erythema [Recovering/Resolving]
  - Conjunctivitis allergic [Recovering/Resolving]

NARRATIVE: CASE EVENT DATE: 20190515
